FAERS Safety Report 17593983 (Version 1)
Quarter: 2020Q1

REPORT INFORMATION
  Report Type: Report from Study
  Country: None (occurrence: US)
  Receive Date: 20200328
  Receipt Date: 20200328
  Transmission Date: 20200409
  Serious: Yes (Other)
  Sender: FDA-Public Use
  Company Number: US-ABBVIE-20K-163-3340244-00

PATIENT
  Sex: Male

DRUGS (2)
  1. HUMIRA [Suspect]
     Active Substance: ADALIMUMAB
     Dosage: DAY 8
     Route: 058
     Dates: start: 20200307
  2. HUMIRA [Suspect]
     Active Substance: ADALIMUMAB
     Indication: UVEITIS
     Dosage: DAY 1
     Route: 058
     Dates: start: 20200229, end: 20200229

REACTIONS (4)
  - Psoriasis [Unknown]
  - Eye pain [Unknown]
  - Macular oedema [Unknown]
  - Eye discharge [Unknown]

NARRATIVE: CASE EVENT DATE: 2020
